FAERS Safety Report 4515375-2 (Version None)
Quarter: 2004Q4

REPORT INFORMATION
  Report Type: 
  Country: None (occurrence: None)
  Receive Date: 20041201
  Receipt Date: 20041125
  Transmission Date: 20050328
  Serious: Yes (Hospitalization)
  Sender: FDA-Public Use
  Company Number: ES-ROCHE-387111

PATIENT
  Sex: Female

DRUGS (7)
  1. DACLIZUMAB [Suspect]
     Route: 042
     Dates: start: 20041116
  2. DACLIZUMAB [Suspect]
     Route: 042
     Dates: start: 20041117
  3. MYCOPHENOLATE MOFETIL [Suspect]
     Route: 048
     Dates: start: 20041117
  4. SIROLIMUS [Suspect]
     Route: 048
     Dates: start: 20041117
  5. STEROIDS NOS [Suspect]
     Route: 048
     Dates: start: 20041116
  6. OMEPRAZOLE [Concomitant]
     Route: 048
     Dates: start: 20041117
  7. COTRIMOXAZOLE [Concomitant]
     Route: 048
     Dates: start: 20041117

REACTIONS (2)
  - INTESTINAL OBSTRUCTION [None]
  - SUBILEUS [None]
